FAERS Safety Report 21728417 (Version 5)
Quarter: 2023Q1

REPORT INFORMATION
  Report Type: Spontaneous
  Country: JP (occurrence: JP)
  Receive Date: 20221214
  Receipt Date: 20230209
  Transmission Date: 20230417
  Serious: Yes (Hospitalization)
  Sender: FDA-Public Use
  Company Number: JP-JNJFOC-20221220979

PATIENT
  Age: 43 Year
  Sex: Male
  Weight: 52 kg

DRUGS (5)
  1. EPOPROSTENOL [Suspect]
     Active Substance: EPOPROSTENOL
     Indication: Pulmonary arterial hypertension
     Dosage: STRENGTH: 0.5 MG/1.5 MG
     Route: 041
     Dates: start: 2012
  2. EPOPROSTENOL [Suspect]
     Active Substance: EPOPROSTENOL
     Dosage: 86 NG/KG/MIN
     Route: 041
     Dates: start: 20131024, end: 20140409
  3. EPOPROSTENOL [Suspect]
     Active Substance: EPOPROSTENOL
     Dosage: 97 NG/KG/MIN
     Route: 041
     Dates: start: 20140410
  4. EPOPROSTENOL [Suspect]
     Active Substance: EPOPROSTENOL
     Dosage: 88 NG/KG/MIN
     Route: 041
     Dates: start: 20150615, end: 20151005
  5. EPOPROSTENOL [Suspect]
     Active Substance: EPOPROSTENOL
     Route: 041
     Dates: start: 20220101

REACTIONS (1)
  - Device occlusion [Recovered/Resolved]

NARRATIVE: CASE EVENT DATE: 20220901
